FAERS Safety Report 10488797 (Version 2)
Quarter: 2014Q4

REPORT INFORMATION
  Report Type: Report from Study
  Country: IT (occurrence: IT)
  Receive Date: 20141002
  Receipt Date: 20141007
  Transmission Date: 20150528
  Serious: Yes (Death, Hospitalization)
  Sender: FDA-Public Use
  Company Number: IT-AMGEN-ITACT2014075728

PATIENT
  Age: 54 Year
  Sex: Female

DRUGS (2)
  1. MEK 162 [Concomitant]
     Indication: COLORECTAL CANCER METASTATIC
     Dosage: 45 MG, BID
     Route: 048
     Dates: start: 20140724, end: 20140903
  2. PANITUMUMAB [Suspect]
     Active Substance: PANITUMUMAB
     Indication: COLORECTAL CANCER METASTATIC
     Dosage: 390 MG, Q15
     Route: 042
     Dates: start: 20140724, end: 20140821

REACTIONS (1)
  - General physical health deterioration [Fatal]

NARRATIVE: CASE EVENT DATE: 20140910
